FAERS Safety Report 24677489 (Version 3)
Quarter: 2025Q3

REPORT INFORMATION
  Report Type: Spontaneous
  Country: US (occurrence: US)
  Receive Date: 20241129
  Receipt Date: 20250909
  Transmission Date: 20251020
  Serious: No
  Sender: SANOFI AVENTIS
  Company Number: US-SA-2024SA348262

PATIENT
  Sex: Male

DRUGS (10)
  1. DUPIXENT [Suspect]
     Active Substance: DUPILUMAB
     Indication: Dermatitis atopic
     Dosage: 300 MG, QOW
     Route: 058
     Dates: start: 20241010
  2. ATORVASTATIN [Concomitant]
     Active Substance: ATORVASTATIN
  3. ATORVASTATIN [Concomitant]
     Active Substance: ATORVASTATIN
  4. BENZONATATE [Concomitant]
     Active Substance: BENZONATATE
  5. CLOBETASOL [Concomitant]
     Active Substance: CLOBETASOL
  6. FLUTICASONE [Concomitant]
     Active Substance: FLUTICASONE
  7. METHYLPREDNISOLONE [Concomitant]
     Active Substance: METHYLPREDNISOLONE
  8. METOPROLOL SUCCINATE [Concomitant]
     Active Substance: METOPROLOL SUCCINATE
  9. PREDNISONE [Concomitant]
     Active Substance: PREDNISONE
  10. BETAMETH DIPROPIONATE [Concomitant]

REACTIONS (2)
  - Sleep disorder due to a general medical condition [Unknown]
  - Drug ineffective [Unknown]
